FAERS Safety Report 6693145-7 (Version None)
Quarter: 2010Q2

REPORT INFORMATION
  Report Type: 
  Country: None (occurrence: None)
  Receive Date: 20100421
  Receipt Date: 20100421
  Transmission Date: 20101027
  Serious: Yes (Hospitalization)
  Sender: FDA-Public Use
  Company Number: None

PATIENT
  Age: 37 Year
  Sex: Female
  Weight: 55.7924 kg

DRUGS (1)
  1. SEPTOCAINE [Suspect]
     Indication: DENTAL DISORDER PROPHYLAXIS
     Dosage: 1 ML/40 MG ARTICANE

REACTIONS (11)
  - ABDOMINAL DISCOMFORT [None]
  - CHILLS [None]
  - DIARRHOEA [None]
  - DIZZINESS [None]
  - DRUG HYPERSENSITIVITY [None]
  - DYSGEUSIA [None]
  - HEADACHE [None]
  - HYPOAESTHESIA [None]
  - NAUSEA [None]
  - NERVOUSNESS [None]
  - THIRST [None]
